FAERS Safety Report 8155543-4 (Version None)
Quarter: 2012Q1

REPORT INFORMATION
  Report Type: 
  Country: None (occurrence: None)
  Receive Date: 20120215
  Receipt Date: 20120202
  Transmission Date: 20120608
  Serious: Yes (Other)
  Sender: FDA-Public Use
  Company Number: 1000028113

PATIENT
  Sex: Female
  Weight: 51 kg

DRUGS (6)
  1. FORAIR (FORMOTEROL FUMARATE) (FORMOTEROL FUMARATE) [Concomitant]
  2. PREDNIHEXAL (PREDNISOLONE ACETATE) (PREDNISOLONE ACETATE) [Concomitant]
  3. ROFLUMILAST (ROFLUMILAST) (TABLETS) [Suspect]
     Indication: CHRONIC OBSTRUCTIVE PULMONARY DISEASE
     Dosage: (500 MCG), ORAL
     Route: 048
     Dates: start: 20110310, end: 20110401
  4. SALBUHEXAL (SALBUTAMOL) (SALBUTAMOL) [Concomitant]
  5. JUNIK (BECLOMETASONE DIPROPIONATE) (BECLOMETASONE DIPROPIONATE) [Concomitant]
  6. SPIRIVA (TIOTROPIUM BROMIDE) (CAPSULES) (TIOTROPIUM BROMIDE) [Concomitant]

REACTIONS (2)
  - GASTRIC DISORDER [None]
  - DIARRHOEA [None]
